FAERS Safety Report 7883507-4 (Version None)
Quarter: 2011Q4

REPORT INFORMATION
  Report Type: 
  Country: None (occurrence: None)
  Receive Date: 20111102
  Receipt Date: 20111025
  Transmission Date: 20120403
  Serious: Yes (Hospitalization)
  Sender: FDA-Public Use
  Company Number: GB-ASTELLAS-2011US004885

PATIENT
  Sex: Female

DRUGS (2)
  1. TACROLIMUS [Suspect]
     Indication: DERMATITIS ATOPIC
     Dosage: 0.03 %, BID
     Route: 061
     Dates: start: 20060524
  2. FLOXACILLIN SODIUM [Concomitant]
     Indication: SKIN INFECTION
     Dosage: UNK
     Route: 048
     Dates: start: 20110211

REACTIONS (2)
  - VARICELLA [None]
  - STAPHYLOCOCCAL SKIN INFECTION [None]
